FAERS Safety Report 18648381 (Version 1)
Quarter: 2020Q4

REPORT INFORMATION
  Report Type: Report from Study
  Country: None (occurrence: US)
  Receive Date: 20201222
  Receipt Date: 20201222
  Transmission Date: 20210114
  Serious: No
  Sender: FDA-Public Use
  Company Number: US-ABBVIE-20K-163-3682321-00

PATIENT
  Age: 28 Year
  Sex: Female

DRUGS (2)
  1. ORIAHNN [Suspect]
     Active Substance: ELAGOLIX SODIUM\ESTRADIOL\NORETHINDRONE
     Indication: PRODUCT USED FOR UNKNOWN INDICATION
     Dosage: TAKEN IN THE EVENING
     Route: 048
     Dates: start: 202011, end: 20201211
  2. ORIAHNN [Suspect]
     Active Substance: ELAGOLIX SODIUM\ESTRADIOL\NORETHINDRONE
     Indication: ENDOMETRIOSIS
     Dosage: TAKEN IN THE MORNING
     Route: 048
     Dates: start: 20201122, end: 20201211

REACTIONS (6)
  - Headache [Recovering/Resolving]
  - Vaginal haemorrhage [Recovering/Resolving]
  - Menstruation delayed [Recovering/Resolving]
  - Depression [Recovering/Resolving]
  - Hypotension [Recovering/Resolving]
  - Nausea [Recovering/Resolving]

NARRATIVE: CASE EVENT DATE: 202011
